FAERS Safety Report 15555043 (Version 1)
Quarter: 2018Q4

REPORT INFORMATION
  Report Type: Spontaneous
  Country: US (occurrence: US)
  Receive Date: 20181026
  Receipt Date: 20181026
  Transmission Date: 20190205
  Serious: Yes (Other)
  Sender: FDA-Public Use
  Company Number: US-AMGEN-USASP2018148013

PATIENT
  Age: 69 Year
  Sex: Female
  Weight: 71 kg

DRUGS (4)
  1. NPLATE [Suspect]
     Active Substance: ROMIPLOSTIM
     Dosage: 720 MUG, UNK
     Route: 065
  2. NPLATE [Suspect]
     Active Substance: ROMIPLOSTIM
     Indication: IMMUNE THROMBOCYTOPENIC PURPURA
     Dosage: UNK
     Route: 065
     Dates: start: 20170303
  3. NPLATE [Suspect]
     Active Substance: ROMIPLOSTIM
     Dosage: 730 MUG, UNK
     Route: 065
  4. NPLATE [Suspect]
     Active Substance: ROMIPLOSTIM
     Dosage: 10 MUG/KG, QWK
     Route: 065
     Dates: start: 201809

REACTIONS (2)
  - Drug effect decreased [Unknown]
  - Platelet count decreased [Unknown]
